FAERS Safety Report 23160646 (Version 1)
Quarter: 2023Q4

REPORT INFORMATION
  Report Type: Spontaneous
  Country: CN (occurrence: CN)
  Receive Date: 20231108
  Receipt Date: 20231108
  Transmission Date: 20240110
  Serious: Yes (Hospitalization, Other)
  Sender: FDA-Public Use
  Company Number: CN-PFIZER INC-PV202300179972

PATIENT
  Age: 20 Month
  Sex: Female
  Weight: 9.5 kg

DRUGS (5)
  1. CYTARABINE [Suspect]
     Active Substance: CYTARABINE
     Indication: Chemotherapy
     Dosage: 0.86 G, 2X/DAY
     Route: 041
     Dates: start: 20231005, end: 20231005
  2. PEGASPARGASE [Suspect]
     Active Substance: PEGASPARGASE
     Indication: Chemotherapy
     Dosage: 1080 IU, 1X/DAY
     Route: 030
     Dates: start: 20231006, end: 20231006
  3. CYCLOPHOSPHAMIDE [Suspect]
     Active Substance: CYCLOPHOSPHAMIDE
     Indication: Chemotherapy
     Dosage: 86 MG, 2X/DAY
     Route: 041
     Dates: start: 20231002, end: 20231004
  4. VINCRISTINE SULFATE [Suspect]
     Active Substance: VINCRISTINE SULFATE
     Indication: Chemotherapy
     Dosage: 0.6 MG, 1X/DAY
     Route: 041
     Dates: start: 20231001, end: 20231001
  5. VINCRISTINE SULFATE [Suspect]
     Active Substance: VINCRISTINE SULFATE
     Dosage: 0.6 MG, 1X/DAY
     Route: 041
     Dates: start: 20231006, end: 20231006

REACTIONS (3)
  - Myelosuppression [Recovering/Resolving]
  - Infection [Recovering/Resolving]
  - Off label use [Unknown]

NARRATIVE: CASE EVENT DATE: 20231005
